FAERS Safety Report 13531036 (Version 1)
Quarter: 2017Q2

REPORT INFORMATION
  Report Type: Spontaneous
  Country: US (occurrence: US)
  Receive Date: 20170510
  Receipt Date: 20170510
  Transmission Date: 20170830
  Serious: No
  Sender: FDA-Public Use
  Company Number: US-VIFOR (INTERNATIONAL) INC.-VIT-2016-08733

PATIENT
  Age: 59 Year
  Sex: Female

DRUGS (13)
  1. TRAZODONE [Concomitant]
     Active Substance: TRAZODONE HYDROCHLORIDE
  2. ATROPINE SULFATE. [Concomitant]
     Active Substance: ATROPINE SULFATE
  3. LEVOTHYROXINE SODIUM. [Concomitant]
     Active Substance: LEVOTHYROXINE SODIUM
  4. CONTOUR [Concomitant]
  5. LISINOPRIL. [Concomitant]
     Active Substance: LISINOPRIL
  6. CYANOCOBALAMIN. [Concomitant]
     Active Substance: CYANOCOBALAMIN
  7. DONEPEZIL. [Concomitant]
     Active Substance: DONEPEZIL
  8. VELTASSA [Suspect]
     Active Substance: PATIROMER
     Indication: HYPERKALAEMIA
     Route: 048
     Dates: start: 20161122
  9. PARACETAMOL [Concomitant]
     Active Substance: ACETAMINOPHEN
  10. NOVOLOG [Concomitant]
     Active Substance: INSULIN ASPART
  11. GABAPENTIN. [Concomitant]
     Active Substance: GABAPENTIN
  12. VELTASSA [Suspect]
     Active Substance: PATIROMER
     Route: 065
     Dates: start: 2016
  13. CITALOPRAM [Concomitant]
     Active Substance: CITALOPRAM HYDROBROMIDE

REACTIONS (2)
  - Inappropriate schedule of drug administration [Recovered/Resolved]
  - Constipation [Not Recovered/Not Resolved]

NARRATIVE: CASE EVENT DATE: 2016
